FAERS Safety Report 4533441-2 (Version None)
Quarter: 2004Q4

REPORT INFORMATION
  Report Type: 
  Country: None (occurrence: None)
  Receive Date: 20041210
  Receipt Date: 20041026
  Transmission Date: 20050328
  Serious: Yes (Hospitalization)
  Sender: FDA-Public Use
  Company Number: 2004-00715

PATIENT
  Age: 70 Year
  Sex: Female
  Weight: 40.8 kg

DRUGS (6)
  1. VELCADE [Suspect]
     Indication: MULTIPLE MYELOMA
     Dosage: SEE IMAGE
     Route: 040
     Dates: start: 20041011
  2. ZOMETA [Concomitant]
  3. SYNTHROID [Concomitant]
  4. NEURONTIN [Concomitant]
  5. DURAGESIC [Concomitant]
  6. VICODIN [Concomitant]

REACTIONS (1)
  - PYREXIA [None]
